FAERS Safety Report 23701577 (Version 1)
Quarter: 2024Q2

REPORT INFORMATION
  Report Type: Spontaneous
  Country: TR (occurrence: TR)
  Receive Date: 20240403
  Receipt Date: 20240403
  Transmission Date: 20240715
  Serious: Yes (Hospitalization, Other)
  Sender: FDA-Public Use
  Company Number: TR-MLMSERVICE-20240318-4890184-1

PATIENT
  Age: 71 Year
  Sex: Female

DRUGS (1)
  1. PACLITAXEL [Suspect]
     Active Substance: PACLITAXEL
     Indication: Non-small cell lung cancer stage IIIA
     Dosage: 100 MG/M2 ONCE EVERY THREE WEEKS

REACTIONS (2)
  - Pulmonary toxicity [Recovering/Resolving]
  - Respiratory distress [Recovering/Resolving]
